FAERS Safety Report 24329469 (Version 2)
Quarter: 2024Q3

REPORT INFORMATION
  Report Type: Spontaneous
  Country: US (occurrence: US)
  Receive Date: 20240917
  Receipt Date: 20240923
  Transmission Date: 20241016
  Serious: Yes (Other)
  Sender: BRISTOL MYERS SQUIBB
  Company Number: US-BRISTOL-MYERS SQUIBB COMPANY-2024-147016

PATIENT
  Age: 66 Year
  Sex: Male

DRUGS (1)
  1. LENALIDOMIDE [Suspect]
     Active Substance: LENALIDOMIDE
     Indication: Plasma cell myeloma
     Dosage: TAKE 1 CAPSULE BY MOUTH AT THE SAME TIME EACH DAY WHOLE W/ WATER AFTER DIALYSIS ON DAYS 1-21 OF EVER
     Route: 048

REACTIONS (4)
  - Fatigue [Not Recovered/Not Resolved]
  - Renal disorder [Unknown]
  - Product dose omission in error [Unknown]
  - Somnolence [Unknown]

NARRATIVE: CASE EVENT DATE: 20240901
